FAERS Safety Report 6425481-3 (Version None)
Quarter: 2009Q4

REPORT INFORMATION
  Report Type: 
  Country: None (occurrence: None)
  Receive Date: 20091103
  Receipt Date: 20091103
  Transmission Date: 20100525
  Serious: Yes (Other)
  Sender: FDA-Public Use
  Company Number: US-PFIZER INC-2009274355

PATIENT
  Sex: Female
  Weight: 58.967 kg

DRUGS (1)
  1. CHANTIX [Suspect]
     Indication: SMOKING CESSATION THERAPY
     Dosage: 0.5 MG, 1X/DAY
     Route: 048
     Dates: start: 20081001, end: 20090701

REACTIONS (4)
  - LUNG LOBECTOMY [None]
  - NEOPLASM MALIGNANT [None]
  - PAIN [None]
  - WHITE BLOOD CELL COUNT DECREASED [None]
